FAERS Safety Report 9186960 (Version 3)
Quarter: 2013Q2

REPORT INFORMATION
  Report Type: Spontaneous
  Country: GB (occurrence: GB)
  Receive Date: 20130325
  Receipt Date: 20130613
  Transmission Date: 20140414
  Serious: Yes (Other)
  Sender: FDA-Public Use
  Company Number: PHFR2013GB001453

PATIENT
  Age: 46 Year
  Sex: Female
  Weight: 81.4 kg

DRUGS (3)
  1. CLOZARIL [Suspect]
     Dosage: 350 MG, DAILY
     Route: 048
     Dates: start: 20040216
  2. CITALOPRAM [Concomitant]
     Dosage: 10 MG, DAILY
     Route: 048
  3. KWELLS [Concomitant]
     Dosage: 300 UG, DAILY
     Route: 048

REACTIONS (3)
  - Schizophrenia, paranoid type [Unknown]
  - Anaemia [Recovered/Resolved]
  - Haemoglobin decreased [Recovered/Resolved]
